FAERS Safety Report 4911183-9 (Version None)
Quarter: 2006Q1

REPORT INFORMATION
  Report Type: 
  Country: None (occurrence: None)
  Receive Date: 20060209
  Receipt Date: 20060131
  Transmission Date: 20060701
  Serious: Yes (Hospitalization)
  Sender: FDA-Public Use
  Company Number: 2006AL000325

PATIENT
  Age: 55 Year
  Sex: Male

DRUGS (9)
  1. SERAX [Suspect]
     Indication: ANXIETY
     Dosage: PO
     Route: 048
     Dates: end: 20051114
  2. ATHYMIL ({NULL}) [Suspect]
     Indication: DEPRESSION
     Dosage: PO
     Route: 048
  3. CELEBREX [Suspect]
     Indication: OSTEOARTHRITIS
     Dates: end: 20051114
  4. PROPOFAN ({NULL}) [Suspect]
     Indication: BACK PAIN
     Dosage: PO
     Route: 048
     Dates: end: 20051114
  5. VASTEN ({NULL}) [Suspect]
     Indication: LIPID METABOLISM DISORDER
     Dosage: PO
     Route: 048
  6. ACEBUTOLOL [Concomitant]
  7. TRIATEC [Concomitant]
  8. TEMESTA [Concomitant]
  9. OMEPRAZOLE [Concomitant]

REACTIONS (3)
  - ARTERIOSCLEROSIS CORONARY ARTERY [None]
  - CORONARY ARTERY STENOSIS [None]
  - MYOCARDIAL INFARCTION [None]
